FAERS Safety Report 17970703 (Version 3)
Quarter: 2021Q2

REPORT INFORMATION
  Report Type: Spontaneous
  Country: TR (occurrence: TR)
  Receive Date: 20200702
  Receipt Date: 20210629
  Transmission Date: 20210717
  Serious: Yes (Other)
  Sender: FDA-Public Use
  Company Number: TR-TEVA-2020-TR-1793142

PATIENT
  Age: 56 Year
  Sex: Female

DRUGS (4)
  1. PERTUZUMAB. [Suspect]
     Active Substance: PERTUZUMAB
     Indication: HER2 POSITIVE BREAST CANCER
     Dosage: 840 MG AS A LOADING DOSE GIVEN INTRAVENOUSLY, FOLLOWED BY 420 MG INTRAVENOUSLY
     Route: 042
     Dates: start: 201804
  2. DOCETAXEL. [Suspect]
     Active Substance: DOCETAXEL
     Indication: HER2 POSITIVE BREAST CANCER
     Dosage: 75 MG PER SQUARE METER, AT 3?WEEKLY INTERVALS. DOCETAXEL WAS DISCONTINUED AFTER 8 CYCLES
     Route: 065
     Dates: start: 201804
  3. LETROZOLE. [Suspect]
     Active Substance: LETROZOLE
     Indication: HER2 POSITIVE BREAST CANCER
     Route: 065
  4. TRASTUZUMAB. [Suspect]
     Active Substance: TRASTUZUMAB
     Indication: HER2 POSITIVE BREAST CANCER
     Dosage: 8 MG PER KILOGRAM OF BODY WEIGHT AS A LOADING DOSE, FOLLOWED BY 6 MG PER KILOGRAM
     Route: 042
     Dates: start: 201804

REACTIONS (2)
  - Distichiasis [Recovering/Resolving]
  - Entropion [Recovering/Resolving]
